FAERS Safety Report 8555915-X (Version None)
Quarter: 2012Q3

REPORT INFORMATION
  Report Type: 
  Country: None (occurrence: None)
  Receive Date: 20120801
  Receipt Date: 20120723
  Transmission Date: 20120928
  Serious: Yes (Hospitalization)
  Sender: FDA-Public Use
  Company Number: US-BIOGENIDEC-2012BI027069

PATIENT
  Age: 35 Year
  Sex: Male

DRUGS (2)
  1. AVONEX [Suspect]
     Route: 030
     Dates: start: 20080318, end: 20120501
  2. AVONEX [Suspect]
     Indication: MULTIPLE SCLEROSIS
     Route: 030
     Dates: start: 20010208, end: 20020909

REACTIONS (5)
  - CONVULSION [None]
  - INSOMNIA [None]
  - HEADACHE [None]
  - DECREASED IMMUNE RESPONSIVENESS [None]
  - TEMPERATURE INTOLERANCE [None]
